FAERS Safety Report 9485976 (Version 1)
Quarter: 2013Q3

REPORT INFORMATION
  Report Type: Spontaneous
  Country: US (occurrence: None)
  Receive Date: 20130826
  Receipt Date: 20130826
  Transmission Date: 20140515
  Serious: Yes (Other)
  Sender: FDA-Public Use
  Company Number: ACO_38011_2013

PATIENT
  Sex: Male

DRUGS (5)
  1. AMPYRA (DALFAMPRIDINE) TABLET, 10MG [Suspect]
     Indication: MULTIPLE SCLEROSIS
  2. AMPYRA (DALFAMPRIDINE) TABLET, 10MG [Suspect]
     Indication: GAIT DISTURBANCE
  3. COPAXONE (GLATIRAMER ACETATE) [Suspect]
     Indication: MULTIPLE SCLEROSIS
     Route: 058
     Dates: start: 1997
  4. PROVIGIL (MODAFINIL) [Concomitant]
  5. TIZANIDINE (TIZANIDINE HYDROCHLORIDE) [Concomitant]

REACTIONS (1)
  - Renal cancer [None]
